FAERS Safety Report 18705324 (Version 1)
Quarter: 2021Q1

REPORT INFORMATION
  Report Type: Spontaneous
  Country: NL (occurrence: NL)
  Receive Date: 20210106
  Receipt Date: 20210106
  Transmission Date: 20210419
  Serious: Yes (Other)
  Sender: FDA-Public Use
  Company Number: NL-TEVA-2020-NL-1865210

PATIENT
  Age: 68 Year
  Sex: Female
  Weight: 56 kg

DRUGS (5)
  1. CALCIUMCARB/COLECALC KAUWTB 1,25G/800IE (500MG CA) / CALCI CHEW D3 KAU [Concomitant]
     Dosage: D3 800MG, THERAPY START DATE; THERAPY END DATE : ASKED BUT UNKNOWN
  2. LEVOTHYROXINE TABLET  25UG (ZUUR) / THYRAX DUOTAB TABLET 0,025MG [Concomitant]
     Dosage: 1.25 2 DAYS 1 DAY 150 MC, THERAPY START DATE; THERAPY END DATE : ASKED BUT UNKNOWN, 1 DF
  3. CLOPIDOGREL TABLET   75MG / BRAND NAME NOT SPECIFIED [Suspect]
     Active Substance: CLOPIDOGREL BISULFATE
     Indication: ANTICOAGULANT THERAPY
     Dosage: 75 MG (MILLIGRAM)
     Dates: start: 202011, end: 20201114
  4. MACROGOL/ZOUTEN PDR V DRANK (MOVICOLON+GENERIEK) / BRAND NAME NOT SPEC [Concomitant]
     Dosage: 2 DOSAGE FORMS DAILY; 2X DAILY 1 SACHET, THERAPY START DATE; THERAPY END DATE : ASKED BUT UNKNOWN
  5. PANTOPRAZOL TABLET MSR 20MG / MAAGZUURTABLET PANTOPRAZOL HTP TABLET MS [Concomitant]
     Dosage: 40MG, THERAPY START DATE; THERAPY END DATE : ASKED BUT UNKNOWN

REACTIONS (2)
  - Rash pruritic [Recovered/Resolved]
  - Angina pectoris [Recovered/Resolved]

NARRATIVE: CASE EVENT DATE: 20201115
